FAERS Safety Report 5399688-0 (Version None)
Quarter: 2007Q3

REPORT INFORMATION
  Report Type: 
  Country: None (occurrence: None)
  Receive Date: 20070727
  Receipt Date: 20070716
  Transmission Date: 20080115
  Serious: Yes (Other)
  Sender: FDA-Public Use
  Company Number: US-PFIZER INC-2007058536

PATIENT
  Sex: Female
  Weight: 60 kg

DRUGS (8)
  1. XALATAN [Suspect]
     Indication: GLAUCOMA
  2. RETINOL [Concomitant]
  3. ALPHAGAN [Concomitant]
  4. OFLOXACIN [Concomitant]
  5. SYNTHROID [Concomitant]
  6. NITROGLYCERIN [Concomitant]
  7. ALTACE [Concomitant]
  8. DILTIAZEM [Concomitant]

REACTIONS (3)
  - LYMPHOMA [None]
  - PRURITUS [None]
  - SKIN DISCOLOURATION [None]
